FAERS Safety Report 10223046 (Version 2)
Quarter: 2014Q2

REPORT INFORMATION
  Report Type: Report from Study
  Country: DE (occurrence: DE)
  Receive Date: 20140607
  Receipt Date: 20140620
  Transmission Date: 20141212
  Serious: Yes (Other)
  Sender: FDA-Public Use
  Company Number: PHHY2014DE069191

PATIENT
  Age: 29 Year
  Sex: Female
  Weight: 78 kg

DRUGS (2)
  1. GILENYA [Suspect]
     Dosage: 0.5 MG, DAILY
     Route: 048
     Dates: end: 20140424
  2. PANTOPRAZOL [Concomitant]
     Indication: GASTRIC DISORDER
     Dosage: 20 MG, DAILY
     Route: 048
     Dates: start: 20140527, end: 20140604

REACTIONS (3)
  - Multiple sclerosis relapse [Recovered/Resolved]
  - Central nervous system lesion [Not Recovered/Not Resolved]
  - Drug ineffective [Not Recovered/Not Resolved]
